FAERS Safety Report 17844472 (Version 2)
Quarter: 2020Q2

REPORT INFORMATION
  Report Type: Spontaneous
  Country: US (occurrence: US)
  Receive Date: 20200601
  Receipt Date: 20200616
  Transmission Date: 20200714
  Serious: Yes (Other)
  Sender: FDA-Public Use
  Company Number: US-ROCHE-2609811

PATIENT
  Age: 14 Year
  Sex: Female

DRUGS (1)
  1. PULMOZYME [Suspect]
     Active Substance: DORNASE ALFA
     Indication: CYSTIC FIBROSIS
     Dosage: DAILY; ONGOING: YES
     Route: 055

REACTIONS (3)
  - Syncope [Unknown]
  - Petit mal epilepsy [Unknown]
  - Cold sweat [Unknown]

NARRATIVE: CASE EVENT DATE: 20200426
